FAERS Safety Report 23993798 (Version 1)
Quarter: 2024Q2

REPORT INFORMATION
  Report Type: Spontaneous
  Country: US (occurrence: None)
  Receive Date: 20240618
  Receipt Date: 20240618
  Transmission Date: 20240716
  Serious: Yes (Disabling)
  Sender: FDA-Public Use
  Company Number: None

PATIENT
  Age: 41 Year
  Sex: Male
  Weight: 60.75 kg

DRUGS (6)
  1. NURTEC ODT [Suspect]
     Active Substance: RIMEGEPANT SULFATE
     Indication: Migraine prophylaxis
     Dosage: OTHER QUANTITY : 16 TABLET(S)?OTHER FREQUENCY : 1 EVERY OTHER DAY?
     Route: 048
     Dates: start: 20240525, end: 20240611
  2. OMEPRAZOLE [Concomitant]
     Active Substance: DONEPEZIL HYDROCHLORIDE\OMEPRAZOLE\OMEPRAZOLE MAGNESIUM
  3. VITAMINS [Concomitant]
     Active Substance: VITAMINS
  4. VITAMIN D3 SUPPLEMENT [Concomitant]
  5. EXCEDRINE [Concomitant]
  6. ADVIL [Concomitant]
     Active Substance: IBUPROFEN\IBUPROFEN SODIUM

REACTIONS (6)
  - Electric shock sensation [None]
  - Speech disorder [None]
  - Aphasia [None]
  - Balance disorder [None]
  - Fall [None]
  - Tremor [None]

NARRATIVE: CASE EVENT DATE: 20240611
